FAERS Safety Report 12503716 (Version 1)
Quarter: 2016Q2

REPORT INFORMATION
  Report Type: Spontaneous
  Country: US (occurrence: None)
  Receive Date: 20160627
  Receipt Date: 20160627
  Transmission Date: 20160815
  Serious: Yes (Other)
  Sender: FDA-Public Use
  Company Number: None

PATIENT
  Age: 57 Year
  Sex: Male
  Weight: 92.08 kg

DRUGS (1)
  1. DULOXETINE ACTAVIS [Suspect]
     Active Substance: DULOXETINE
     Indication: DEPRESSION
     Dosage: TWICE A DAY
     Route: 048
     Dates: start: 20160601, end: 20160610

REACTIONS (6)
  - Palpitations [None]
  - Dizziness [None]
  - Paraesthesia [None]
  - Anosmia [None]
  - Vertigo [None]
  - Ageusia [None]

NARRATIVE: CASE EVENT DATE: 20160624
